FAERS Safety Report 7225521-8 (Version None)
Quarter: 2011Q1

REPORT INFORMATION
  Report Type: 
  Country: None (occurrence: None)
  Receive Date: 20110113
  Receipt Date: 20110111
  Transmission Date: 20110831
  Serious: Yes (Hospitalization)
  Sender: FDA-Public Use
  Company Number: US-PFIZER INC-2011006266

PATIENT
  Sex: Female
  Weight: 104.76 kg

DRUGS (2)
  1. SUNITINIB MALATE [Suspect]
     Indication: BREAST CANCER
     Dosage: 25 MG, 1X/DAY
  2. PACLITAXEL [Suspect]
     Indication: BREAST CANCER
     Dosage: 60-80 MG/M2
     Route: 042

REACTIONS (1)
  - LOCALISED INFECTION [None]
